FAERS Safety Report 4761900-6 (Version None)
Quarter: 2005Q3

REPORT INFORMATION
  Report Type: 
  Country: None (occurrence: None)
  Receive Date: 20050831
  Receipt Date: 20040909
  Transmission Date: 20060218
  Serious: Yes (Other)
  Sender: FDA-Public Use
  Company Number: 2004234714US

PATIENT
  Age: 87 Year
  Sex: Female
  Weight: 52.2 kg

DRUGS (4)
  1. DETROL LA [Suspect]
     Indication: INCONTINENCE
     Dosage: 4 MG, SINGLE, ORAL
     Route: 048
     Dates: start: 20040908, end: 20040908
  2. SYNTHROID [Concomitant]
  3. CLARINEX [Concomitant]
  4. ANTIHYERTENSIVES [Concomitant]

REACTIONS (1)
  - URINARY RETENTION [None]
